FAERS Safety Report 5802190-2 (Version None)
Quarter: 2008Q3

REPORT INFORMATION
  Report Type: 
  Country: None (occurrence: None)
  Receive Date: 20080702
  Receipt Date: 20080611
  Transmission Date: 20090109
  Serious: Yes (Disabling)
  Sender: FDA-Public Use
  Company Number: US023617

PATIENT
  Sex: Female

DRUGS (1)
  1. RIBOMUSTIN [Suspect]
     Indication: MULTIPLE MYELOMA
     Dosage: 60 MG/M2 CYCLIC

REACTIONS (1)
  - VISUAL ACUITY REDUCED [None]
